FAERS Safety Report 25858619 (Version 3)
Quarter: 2025Q4

REPORT INFORMATION
  Report Type: Spontaneous
  Country: US (occurrence: US)
  Receive Date: 20250929
  Receipt Date: 20251120
  Transmission Date: 20260118
  Serious: Yes (Other)
  Sender: PFIZER
  Company Number: US-PFIZER INC-2021411254

PATIENT
  Age: 65 Year

DRUGS (1)
  1. PREMARIN [Suspect]
     Active Substance: ESTROGENS, CONJUGATED
     Dosage: APPLY 1 GRAM AS DIRECTED 3-4 TIMES WEEKLY
     Route: 067

REACTIONS (4)
  - Glaucoma [Unknown]
  - Off label use [Unknown]
  - Cerebral disorder [Unknown]
  - Vitamin D decreased [Unknown]
